FAERS Safety Report 10168388 (Version 1)
Quarter: 2014Q2

REPORT INFORMATION
  Report Type: Report from Study
  Country: CL (occurrence: CL)
  Receive Date: 20140513
  Receipt Date: 20140513
  Transmission Date: 20141212
  Serious: Yes (Other)
  Sender: FDA-Public Use
  Company Number: CL-ROCHE-1399843

PATIENT
  Age: 74 Year
  Sex: Female

DRUGS (1)
  1. XELODA [Suspect]
     Indication: COLON CANCER
     Dosage: 14-DAY-CYCLE
     Route: 048
     Dates: start: 20130412, end: 20140508

REACTIONS (1)
  - Metastases to liver [Not Recovered/Not Resolved]
